FAERS Safety Report 18990654 (Version 1)
Quarter: 2021Q1

REPORT INFORMATION
  Report Type: Spontaneous
  Country: JP (occurrence: JP)
  Receive Date: 20210310
  Receipt Date: 20210310
  Transmission Date: 20210420
  Serious: Yes (Other)
  Sender: FDA-Public Use
  Company Number: JP-ASTELLAS-2021JP000651

PATIENT
  Age: 9 Decade
  Sex: Female

DRUGS (3)
  1. BETANIS [Interacting]
     Active Substance: MIRABEGRON
     Route: 048
     Dates: start: 202002
  2. FLUDEOXYGLUCOSE (18F) [Interacting]
     Active Substance: FLUDEOXYGLUCOSE
     Indication: POSITRON EMISSION TOMOGRAM
     Dosage: UNK UNK, UNKNOWN FREQ.
     Route: 065
  3. BETANIS [Suspect]
     Active Substance: MIRABEGRON
     Indication: HYPERTONIC BLADDER
     Route: 048
     Dates: start: 201912

REACTIONS (3)
  - Drug interaction [Unknown]
  - Lymphoma [Unknown]
  - Positron emission tomogram abnormal [Unknown]

NARRATIVE: CASE EVENT DATE: 20200423
